FAERS Safety Report 7495210-3 (Version None)
Quarter: 2011Q2

REPORT INFORMATION
  Report Type: 
  Country: None (occurrence: None)
  Receive Date: 20110520
  Receipt Date: 20110510
  Transmission Date: 20111010
  Serious: Yes (Other)
  Sender: FDA-Public Use
  Company Number: US-GILEAD-E2B_00001282

PATIENT
  Age: 30 Year
  Sex: Male

DRUGS (1)
  1. HEPSERA [Suspect]
     Indication: HEPATITIS B
     Dosage: 10MG PER DAY
     Route: 065

REACTIONS (3)
  - OSTEOPOROSIS [None]
  - RIB FRACTURE [None]
  - FANCONI SYNDROME ACQUIRED [None]
